FAERS Safety Report 5642404-5 (Version None)
Quarter: 2008Q1

REPORT INFORMATION
  Report Type: 
  Country: None (occurrence: None)
  Receive Date: 20080131
  Receipt Date: 20071130
  Transmission Date: 20080703
  Serious: No
  Sender: FDA-Public Use
  Company Number: US200712000581

PATIENT
  Sex: Female
  Weight: 80.7 kg

DRUGS (4)
  1. BYETTA [Suspect]
     Indication: TYPE 2 DIABETES MELLITUS
     Dosage: 5 UG, 2/D, SUBCUTANEOUS, 10UG, 2/D, SUBCUTANEOUS
     Route: 058
     Dates: start: 20060101
  2. GLUCOPHAGE (METFORMIN HYDROCHLORIDE)` [Concomitant]
  3. AMARYL [Concomitant]
  4. INSULIN (INSULIN) [Concomitant]

REACTIONS (3)
  - BLOOD GLUCOSE DECREASED [None]
  - IRON DEFICIENCY ANAEMIA [None]
  - NAUSEA [None]
